FAERS Safety Report 8507094-2 (Version None)
Quarter: 2012Q3

REPORT INFORMATION
  Report Type: 
  Country: None (occurrence: None)
  Receive Date: 20120712
  Receipt Date: 20120703
  Transmission Date: 20120928
  Serious: Yes (Other)
  Sender: FDA-Public Use
  Company Number: US-JNJFOC-20120503673

PATIENT
  Sex: Female

DRUGS (14)
  1. METFORMIN HCL [Concomitant]
  2. MIRALAX [Concomitant]
  3. AMBIEN [Concomitant]
  4. CLOBETASOL PROPIONATE [Concomitant]
  5. REMICADE [Suspect]
     Indication: CROHN'S DISEASE
     Route: 042
     Dates: start: 20120316
  6. REMICADE [Suspect]
     Route: 042
     Dates: start: 20100901
  7. SOMA [Concomitant]
  8. OMNARIS [Concomitant]
  9. TEGRETOL [Concomitant]
  10. XANAX [Concomitant]
  11. VICODIN [Concomitant]
  12. ZOFRAN [Concomitant]
  13. LEXAPRO [Concomitant]
  14. LEVSIN SL [Concomitant]

REACTIONS (3)
  - PAIN IN JAW [None]
  - TRIGEMINAL NEURALGIA [None]
  - ERYTHEMA [None]
